FAERS Safety Report 14657223 (Version 1)
Quarter: 2018Q1

REPORT INFORMATION
  Report Type: Spontaneous
  Country: FR (occurrence: FR)
  Receive Date: 20180319
  Receipt Date: 20180319
  Transmission Date: 20180509
  Serious: Yes (Hospitalization, Other)
  Sender: FDA-Public Use
  Company Number: FR-PFIZER INC-2018107310

PATIENT
  Age: 64 Year
  Sex: Female

DRUGS (4)
  1. NOZINAN /00038601/ [Suspect]
     Active Substance: LEVOMEPROMAZINE
     Dosage: 1 DF, 1X/DAY
     Route: 048
  2. TEMESTA (LORAZEPAM) [Suspect]
     Active Substance: LORAZEPAM
     Dosage: 1 MG, 1X/DAY
     Route: 048
  3. HUMIRA [Suspect]
     Active Substance: ADALIMUMAB
     Dosage: 2 DF, MONTHLY
     Route: 058
     Dates: start: 20050101, end: 20170601
  4. PREDNISONE. [Suspect]
     Active Substance: PREDNISONE
     Dosage: 7 MG, 1X/DAY
     Route: 048

REACTIONS (1)
  - Hepatitis [Not Recovered/Not Resolved]

NARRATIVE: CASE EVENT DATE: 20161201
